FAERS Safety Report 10676127 (Version 1)
Quarter: 2014Q4

REPORT INFORMATION
  Report Type: Spontaneous
  Country: US (occurrence: US)
  Receive Date: 20141226
  Receipt Date: 20141226
  Transmission Date: 20150529
  Serious: Yes (Hospitalization)
  Sender: FDA-Public Use
  Company Number: US-CIPLA LTD.-2014US02876

PATIENT
  Age: 44 Year
  Sex: Female

DRUGS (3)
  1. CARBOPLATIN. [Suspect]
     Active Substance: CARBOPLATIN
     Dosage: 792 MG IN 250 ML NORMAL SALINE FOR AN AREA UNDER THE CURVE OF 6
  2. PACLITAXEL. [Suspect]
     Active Substance: PACLITAXEL
     Dosage: 175 MG/M2 (292 MG IN 500 ML NORMAL SALINE)
  3. DECADRON [Concomitant]
     Active Substance: DEXAMETHASONE
     Dosage: 8 MG/DAY

REACTIONS (4)
  - Renal haemorrhage [Unknown]
  - Acute kidney injury [Unknown]
  - Thrombosis [Unknown]
  - Hydronephrosis [Unknown]
